FAERS Safety Report 6488885-9 (Version None)
Quarter: 2009Q4

REPORT INFORMATION
  Report Type: 
  Country: None (occurrence: None)
  Receive Date: 20091210
  Receipt Date: 20091204
  Transmission Date: 20100525
  Serious: Yes (Other)
  Sender: FDA-Public Use
  Company Number: US-SANOFI-AVENTIS-2009SA006511

PATIENT
  Age: 87 Year
  Sex: Female

DRUGS (7)
  1. MULTAQ [Suspect]
     Indication: ATRIAL FIBRILLATION
     Route: 048
     Dates: start: 20091001
  2. COUMADIN [Suspect]
     Indication: ATRIAL FIBRILLATION
     Dosage: 0.5MG TAKEN 5 DAYS PER WEEK
     Route: 048
     Dates: end: 20091101
  3. COUMADIN [Suspect]
     Indication: CARDIAC PACEMAKER INSERTION
     Dosage: 0.5MG TAKEN 5 DAYS PER WEEK
     Route: 048
     Dates: end: 20091101
  4. COUMADIN [Suspect]
     Dosage: 0.5MG 5 DAYS PER WEEK
     Route: 048
     Dates: start: 20091101, end: 20091201
  5. COUMADIN [Suspect]
     Dosage: 0.5MG 5 DAYS PER WEEK
     Route: 048
     Dates: start: 20091101, end: 20091201
  6. SIMVASTATIN [Concomitant]
  7. MIACALCIN [Concomitant]

REACTIONS (1)
  - INTERNATIONAL NORMALISED RATIO INCREASED [None]
